FAERS Safety Report 8258027-8 (Version None)
Quarter: 2012Q2

REPORT INFORMATION
  Report Type: 
  Country: None (occurrence: None)
  Receive Date: 20120404
  Receipt Date: 20120322
  Transmission Date: 20120825
  Serious: Yes (Hospitalization, Other)
  Sender: FDA-Public Use
  Company Number: FR-SANOFI-AVENTIS-2012SA010065

PATIENT
  Age: 61 Year
  Sex: Female
  Weight: 37 kg

DRUGS (5)
  1. LANTUS [Suspect]
     Indication: TYPE 2 DIABETES MELLITUS
     Route: 058
     Dates: start: 20090624
  2. LEXOMIL [Concomitant]
     Dosage: 1/4 U DOSE:0.25 UNIT(S)
     Route: 048
     Dates: start: 20070101
  3. TANAKAN [Concomitant]
     Dosage: DOSE:3 UNIT(S)
     Dates: start: 20070101
  4. TANGANIL [Concomitant]
     Dosage: DOSE:3 UNIT(S)
     Route: 048
     Dates: start: 20070101
  5. BETAHISTINE [Concomitant]
     Dosage: DOSE:6 UNIT(S)
     Route: 048
     Dates: start: 20070101

REACTIONS (3)
  - METASTASES TO LYMPH NODES [None]
  - BLADDER CANCER [None]
  - TRANSITIONAL CELL CARCINOMA [None]
